FAERS Safety Report 9203427 (Version 1)
Quarter: 2013Q2

REPORT INFORMATION
  Report Type: Spontaneous
  Country: US (occurrence: US)
  Receive Date: 20130402
  Receipt Date: 20130402
  Transmission Date: 20140414
  Serious: Yes (Death)
  Sender: FDA-Public Use
  Company Number: US-PFIZER INC-2013104040

PATIENT
  Sex: Female

DRUGS (4)
  1. XANAX [Suspect]
     Dosage: UNK
  2. OXYCONTIN [Suspect]
     Dosage: UNK
  3. SOMA [Suspect]
     Dosage: UNK
  4. ABILIFY [Suspect]
     Dosage: UNK

REACTIONS (1)
  - Death [Fatal]
